FAERS Safety Report 5414176-0 (Version None)
Quarter: 2007Q3

REPORT INFORMATION
  Report Type: 
  Country: None (occurrence: None)
  Receive Date: 20070814
  Receipt Date: 20070803
  Transmission Date: 20080115
  Serious: Yes (Hospitalization)
  Sender: FDA-Public Use
  Company Number: US-SANOFI-SYNTHELABO-A03200703224

PATIENT
  Sex: Female
  Weight: 57.2 kg

DRUGS (9)
  1. LIPITOR [Concomitant]
     Route: 065
     Dates: start: 20010101
  2. NORVASC [Concomitant]
     Route: 065
     Dates: start: 20010101
  3. PLAVIX [Suspect]
     Indication: CEREBROVASCULAR ACCIDENT
     Route: 048
     Dates: start: 20010101, end: 20070501
  4. VALIUM [Concomitant]
     Dosage: UNK
     Route: 048
  5. PRILOSEC [Concomitant]
     Dosage: UNK
     Route: 048
  6. ASPIRIN [Concomitant]
     Dosage: UNK
     Route: 065
  7. PAXIL [Concomitant]
     Dosage: UNK
     Route: 048
  8. ATENOLOL [Concomitant]
     Dosage: UNK
     Route: 048
  9. CADUET [Concomitant]
     Dosage: UNK
     Route: 065

REACTIONS (12)
  - ASTHENIA [None]
  - BALANCE DISORDER [None]
  - CONSTIPATION [None]
  - ECCHYMOSIS [None]
  - ECZEMA [None]
  - ERYTHEMA [None]
  - GINGIVAL INFECTION [None]
  - HYPERTENSION [None]
  - OEDEMA PERIPHERAL [None]
  - THROMBOCYTOPENIA [None]
  - VISION BLURRED [None]
  - VISUAL FIELD DEFECT [None]
